FAERS Safety Report 11629655 (Version 2)
Quarter: 2016Q3

REPORT INFORMATION
  Report Type: Spontaneous
  Country: US (occurrence: US)
  Receive Date: 20151014
  Receipt Date: 20160729
  Transmission Date: 20161109
  Serious: No
  Sender: FDA-Public Use
  Company Number: US-ASTRAZENECA-2015SE96060

PATIENT
  Age: 1066 Month
  Sex: Male
  Weight: 68 kg

DRUGS (2)
  1. TUDORZA PRESSAIR [Suspect]
     Active Substance: ACLIDINIUM BROMIDE
     Indication: PNEUMONIA
     Dosage: 400MCG 60 INHALATION, ONE PUFF TWO TIMES A DAY
     Route: 055
     Dates: start: 20150930
  2. TUDORZA PRESSAIR [Suspect]
     Active Substance: ACLIDINIUM BROMIDE
     Indication: BRONCHITIS
     Dosage: 400MCG 60 INHALATION, ONE PUFF TWO TIMES A DAY
     Route: 055
     Dates: start: 20150930

REACTIONS (4)
  - Sleep disorder due to general medical condition, insomnia type [Unknown]
  - Cough [Not Recovered/Not Resolved]
  - Product use issue [Unknown]
  - Device malfunction [Unknown]

NARRATIVE: CASE EVENT DATE: 201509
